FAERS Safety Report 12074814 (Version 1)
Quarter: 2016Q1

REPORT INFORMATION
  Report Type: Spontaneous
  Country: FR (occurrence: FR)
  Receive Date: 20160212
  Receipt Date: 20160212
  Transmission Date: 20160526
  Serious: Yes (Congenital Anomaly)
  Sender: FDA-Public Use
  Company Number: DE-ASTRAZENECA-2016SE14451

PATIENT
  Sex: Female

DRUGS (4)
  1. OMEPRAZOLE. [Suspect]
     Active Substance: OMEPRAZOLE
     Route: 064
  2. OMEPRAZOLE. [Suspect]
     Active Substance: OMEPRAZOLE
     Dosage: 20 MG, 1 TO 2 PER DAY
     Route: 064
  3. DONORMYL [Suspect]
     Active Substance: DOXYLAMINE SUCCINATE
     Route: 064
     Dates: start: 20150409, end: 201507
  4. AERIUS [Suspect]
     Active Substance: DESLORATADINE
     Route: 064

REACTIONS (2)
  - Atrial septal defect [Not Recovered/Not Resolved]
  - Ventricular septal defect [Not Recovered/Not Resolved]

NARRATIVE: CASE EVENT DATE: 20151125
